FAERS Safety Report 5068031-9 (Version None)
Quarter: 2006Q3

REPORT INFORMATION
  Report Type: 
  Country: None (occurrence: None)
  Receive Date: 20060731
  Receipt Date: 20060724
  Transmission Date: 20061208
  Serious: Yes (Hospitalization)
  Sender: FDA-Public Use
  Company Number: 2006-04082

PATIENT
  Age: 79 Year
  Sex: Male

DRUGS (2)
  1. DOXYCYCLINE HYCLATE [Suspect]
     Indication: PROPHYLAXIS
     Dosage: 1 CAPSUL, DAILY, ORAL
     Route: 048
     Dates: start: 20050901
  2. ENALAPRIL MALEATE [Concomitant]

REACTIONS (6)
  - DIZZINESS [None]
  - FALL [None]
  - HEAD INJURY [None]
  - SKIN LACERATION [None]
  - SYNCOPE [None]
  - VISION BLURRED [None]
